FAERS Safety Report 12458992 (Version 2)
Quarter: 2016Q2

REPORT INFORMATION
  Report Type: Spontaneous
  Country: AU (occurrence: AU)
  Receive Date: 20160613
  Receipt Date: 20160625
  Transmission Date: 20160815
  Serious: Yes (Hospitalization)
  Sender: FDA-Public Use
  Company Number: AU-ACCORD-041366

PATIENT
  Age: 66 Year
  Sex: Male

DRUGS (4)
  1. DEXAMETHASONE. [Concomitant]
     Active Substance: DEXAMETHASONE
     Indication: PREMEDICATION
     Route: 048
     Dates: start: 20160526, end: 20160526
  2. PALONOSETRON/PALONOSETRON HYDROCHLORIDE [Concomitant]
     Indication: CHEMOTHERAPY
     Dates: start: 20160526
  3. CAPECITABINE. [Suspect]
     Active Substance: CAPECITABINE
     Indication: CHEMOTHERAPY
     Dates: start: 20160526
  4. SANDOZ^S OXALIPLATIN [Suspect]
     Active Substance: OXALIPLATIN
     Indication: CHEMOTHERAPY
     Dates: start: 20160526

REACTIONS (7)
  - Vision blurred [Not Recovered/Not Resolved]
  - Paraesthesia [Not Recovered/Not Resolved]
  - Dysphonia [Not Recovered/Not Resolved]
  - Diarrhoea [Not Recovered/Not Resolved]
  - Vomiting [Not Recovered/Not Resolved]
  - Dysstasia [Not Recovered/Not Resolved]
  - Dizziness [Not Recovered/Not Resolved]

NARRATIVE: CASE EVENT DATE: 20160526
